FAERS Safety Report 21791523 (Version 1)
Quarter: 2022Q4

REPORT INFORMATION
  Report Type: Spontaneous
  Country: US (occurrence: US)
  Receive Date: 20221228
  Receipt Date: 20221228
  Transmission Date: 20230112
  Serious: No
  Sender: FDA-Public Use
  Company Number: US-BRISTOL-MYERS SQUIBB COMPANY-2022-159897

PATIENT
  Age: 53 Year
  Sex: Male

DRUGS (1)
  1. REVLIMID [Suspect]
     Active Substance: LENALIDOMIDE
     Indication: Plasma cell myeloma
     Dosage: 1 CAPSULE ONCE DAILY FOR 14 DAYS ON THEN 14 DAYS OFF.
     Route: 048
     Dates: start: 202202

REACTIONS (4)
  - Sleep talking [Unknown]
  - Chills [Unknown]
  - Diarrhoea [Unknown]
  - Off label use [Unknown]
